FAERS Safety Report 6651758-2 (Version None)
Quarter: 2010Q1

REPORT INFORMATION
  Report Type: 
  Country: None (occurrence: None)
  Receive Date: 20100309
  Receipt Date: 20091114
  Transmission Date: 20100710
  Serious: No
  Sender: FDA-Public Use
  Company Number: 2009SP036679

PATIENT
  Age: 19 Year
  Sex: Male

DRUGS (2)
  1. SAPHRIS [Suspect]
     Indication: SCHIZOPHRENIA
     Dosage: 5 MG; BID
     Dates: start: 20091020
  2. FLUOXETINE [Concomitant]

REACTIONS (1)
  - HYPOAESTHESIA ORAL [None]
